FAERS Safety Report 17153739 (Version 1)
Quarter: 2019Q4

REPORT INFORMATION
  Report Type: Spontaneous
  Country: MY (occurrence: MY)
  Receive Date: 20191213
  Receipt Date: 20191213
  Transmission Date: 20200122
  Serious: Yes (Other)
  Sender: FDA-Public Use
  Company Number: MY-NOVOPROD-701794

PATIENT
  Age: 32 Year
  Sex: Female

DRUGS (1)
  1. INSULATARD NPH HUMAN [Suspect]
     Active Substance: INSULIN HUMAN
     Indication: GESTATIONAL DIABETES
     Dosage: 8 IU, QD (DOSE INTERVAL 1 DAY)
     Route: 058

REACTIONS (2)
  - Maternal exposure during pregnancy [Recovered/Resolved]
  - Pruritus [Recovering/Resolving]
